FAERS Safety Report 6564770-9 (Version None)
Quarter: 2010Q1

REPORT INFORMATION
  Report Type: 
  Country: None (occurrence: None)
  Receive Date: 20100201
  Receipt Date: 20100125
  Transmission Date: 20100710
  Serious: Yes (Hospitalization)
  Sender: FDA-Public Use
  Company Number: FR-WYE-G05416210

PATIENT
  Sex: Male

DRUGS (16)
  1. TAZOCILLINE [Suspect]
     Indication: LUNG INFECTION
     Dosage: 16 G TOTAL DAILY
     Route: 042
     Dates: start: 20080707, end: 20080711
  2. ZECLAR [Suspect]
     Indication: PNEUMONIA LEGIONELLA
     Dosage: 1 G TOTAL DAILY
     Route: 042
     Dates: start: 20080629, end: 20080714
  3. PERFALGAN [Suspect]
     Dosage: 40 MG TOTAL DAILY
     Route: 042
     Dates: start: 20080629, end: 20080717
  4. CIPROFLOXACIN HCL [Suspect]
     Indication: PNEUMONIA LEGIONELLA
     Dosage: 3 DOSAGE FORMS TOTAL DAILY
     Route: 042
     Dates: start: 20080702, end: 20080704
  5. TAVANIC [Suspect]
     Indication: PNEUMONIA LEGIONELLA
     Dosage: 10 MG TOTAL DAILY
     Route: 042
     Dates: start: 20080703
  6. LOVENOX [Suspect]
     Dosage: 1 DOSAGE FORM TOTAL DAILY
     Route: 058
     Dates: start: 20080705
  7. AERIUS [Suspect]
     Route: 048
     Dates: start: 20080709
  8. VENOFER [Suspect]
     Dosage: 300 MG TOTAL DAILY
     Route: 048
     Dates: start: 20080711
  9. TPN [Suspect]
     Dosage: UNKNOWN
     Route: 042
  10. ZYVOXID [Suspect]
     Indication: LUNG INFECTION
     Dosage: 3 DOSAGES FORM TOTAL DAILY
     Route: 048
     Dates: start: 20080714
  11. OMEPRAZOLE [Suspect]
     Route: 048
     Dates: start: 20080717
  12. TIENAM [Suspect]
     Indication: LUNG INFECTION
     Dosage: 3 DOSAGES FORM
     Route: 048
     Dates: start: 20080718
  13. DOLIPRANE [Suspect]
     Dosage: 4 DOSAGES FORM TOTAL DAILY
     Route: 048
     Dates: start: 20080718
  14. ROCEPHIN [Suspect]
     Indication: PNEUMONIA LEGIONELLA
     Dosage: 4 G; FREQUENCY UNSPECIFIED
     Route: 042
     Dates: start: 20080629, end: 20080702
  15. SUCRALFATE [Concomitant]
     Dosage: 3 G TOTAL DAILY
     Route: 048
     Dates: start: 20080630, end: 20080716
  16. IZILOX [Suspect]
     Indication: PNEUMONIA LEGIONELLA
     Route: 042
     Dates: start: 20080629, end: 20080702

REACTIONS (5)
  - BLOOD BILIRUBIN INCREASED [None]
  - CONDITION AGGRAVATED [None]
  - CYTOLYTIC HEPATITIS [None]
  - GAMMA-GLUTAMYLTRANSFERASE INCREASED [None]
  - RASH PRURITIC [None]
